FAERS Safety Report 10198273 (Version 1)
Quarter: 2014Q2

REPORT INFORMATION
  Report Type: Spontaneous
  Country: None (occurrence: US)
  Receive Date: 20140527
  Receipt Date: 20140527
  Transmission Date: 20141212
  Serious: No
  Sender: FDA-Public Use
  Company Number: US-NOVEN-13US007180

PATIENT
  Age: 8 Year
  Sex: Male
  Weight: 18.14 kg

DRUGS (2)
  1. DAYTRANA [Suspect]
     Indication: ATTENTION DEFICIT/HYPERACTIVITY DISORDER
     Dosage: 20 MG, UNK
     Route: 062
     Dates: start: 2013, end: 2013
  2. DAYTRANA [Suspect]
     Dosage: 30 MG, UNK
     Route: 062
     Dates: start: 2013

REACTIONS (2)
  - Formication [Not Recovered/Not Resolved]
  - Drug ineffective [Recovered/Resolved]
